FAERS Safety Report 4826859-1 (Version None)
Quarter: 2005Q4

REPORT INFORMATION
  Report Type: 
  Country: None (occurrence: None)
  Receive Date: 20051014
  Receipt Date: 20050720
  Transmission Date: 20060501
  Serious: No
  Sender: FDA-Public Use
  Company Number: 2005SP001966

PATIENT
  Age: 79 Year
  Sex: Male
  Weight: 70.7611 kg

DRUGS (5)
  1. LUNESTA [Suspect]
     Indication: INSOMNIA
     Dosage: 3 MG;HS;ORAL, 2 MG;HS;ORAL, 4 MG;ORAL
     Route: 048
     Dates: start: 20050401, end: 20050701
  2. LUNESTA [Suspect]
     Indication: INSOMNIA
     Dosage: 3 MG;HS;ORAL, 2 MG;HS;ORAL, 4 MG;ORAL
     Route: 048
     Dates: start: 20050701
  3. LUNESTA [Suspect]
     Indication: INSOMNIA
     Dosage: 3 MG;HS;ORAL, 2 MG;HS;ORAL, 4 MG;ORAL
     Route: 048
     Dates: start: 20050701
  4. ATENOLOL [Concomitant]
  5. DIAZIDE [Concomitant]

REACTIONS (4)
  - DRUG INEFFECTIVE [None]
  - HEADACHE [None]
  - INSOMNIA [None]
  - SOMNOLENCE [None]
